FAERS Safety Report 5366907-6 (Version None)
Quarter: 2007Q2

REPORT INFORMATION
  Report Type: 
  Country: None (occurrence: None)
  Receive Date: 20070622
  Receipt Date: 20070413
  Transmission Date: 20071010
  Serious: No
  Sender: FDA-Public Use
  Company Number: US-ASTRAZENECA-2007UW07304

PATIENT
  Age: 81 Year
  Sex: Female
  Weight: 48.5 kg

DRUGS (12)
  1. RHINOCORT [Suspect]
     Indication: DYSPNOEA
     Route: 045
     Dates: start: 20070401
  2. RHINOCORT [Suspect]
     Indication: INCREASED UPPER AIRWAY SECRETION
     Route: 045
     Dates: start: 20070401
  3. RHINOCORT [Suspect]
     Indication: HEADACHE
     Route: 045
     Dates: start: 20070401
  4. AMIODARONE HCL [Concomitant]
  5. ATACAND [Concomitant]
  6. LIPITOR [Concomitant]
  7. KLONOPIN [Concomitant]
  8. SYNTHROID [Concomitant]
  9. ASPIRIN [Concomitant]
  10. ZYPREXA [Concomitant]
  11. WELLBUTRIN [Concomitant]
  12. FOSAMAX [Concomitant]

REACTIONS (2)
  - HEADACHE [None]
  - NAUSEA [None]
